FAERS Safety Report 10303396 (Version 1)
Quarter: 2014Q3

REPORT INFORMATION
  Report Type: Spontaneous
  Country: US (occurrence: US)
  Receive Date: 20140714
  Receipt Date: 20140714
  Transmission Date: 20150326
  Serious: Yes (Other)
  Sender: FDA-Public Use
  Company Number: US-PFIZER INC-2014194953

PATIENT
  Age: 57 Year
  Sex: Female

DRUGS (2)
  1. CELEBREX [Suspect]
     Active Substance: CELECOXIB
     Indication: ARTHRALGIA
     Dosage: 200 MG, 2X/DAY
     Route: 048
  2. CELEBREX [Suspect]
     Active Substance: CELECOXIB
     Indication: SPONDYLITIS

REACTIONS (11)
  - Cervical spinal stenosis [Unknown]
  - Spinal column stenosis [Unknown]
  - Neuropathy peripheral [Unknown]
  - Glaucoma [Unknown]
  - Incontinence [Unknown]
  - Cardiac disorder [Unknown]
  - Memory impairment [Unknown]
  - Atrial fibrillation [Unknown]
  - Blindness unilateral [Unknown]
  - Attention deficit/hyperactivity disorder [Unknown]
  - Diverticulitis [Unknown]
